FAERS Safety Report 4892130-5 (Version None)
Quarter: 2006Q1

REPORT INFORMATION
  Report Type: 
  Country: None (occurrence: None)
  Receive Date: 20060123
  Receipt Date: 20051216
  Transmission Date: 20060701
  Serious: Yes (Death, Other)
  Sender: FDA-Public Use
  Company Number: MAG-2005-0000417

PATIENT
  Age: 51 Year
  Sex: Female

DRUGS (2)
  1. OXYCODONE HCI CONTROLLED RELEASE TABLETS (OXYCODONE HYDROCHLORIDE) CR [Suspect]
     Indication: DRUG USE FOR UNKNOWN INDICATION
     Dosage: SEE IMAGE
     Route: 048
  2. OXYCODONE HCI CONTROLLED RELEASE TABLETS (OXYCODONE HYDROCHLORIDE) CR [Suspect]
     Indication: DRUG USE FOR UNKNOWN INDICATION
     Dosage: SEE IMAGE
     Route: 048

REACTIONS (4)
  - CONSTIPATION [None]
  - GASTRITIS [None]
  - HEPATIC FAILURE [None]
  - NEOPLASM PROGRESSION [None]
